FAERS Safety Report 11603363 (Version 1)
Quarter: 2015Q4

REPORT INFORMATION
  Report Type: Spontaneous
  Country: CN (occurrence: CN)
  Receive Date: 20151007
  Receipt Date: 20151007
  Transmission Date: 20160304
  Serious: Yes (Other)
  Sender: FDA-Public Use
  Company Number: CN-PAR PHARMACEUTICAL COMPANIES-2015SCPR014342

PATIENT

DRUGS (1)
  1. KETALAR [Suspect]
     Active Substance: KETAMINE HYDROCHLORIDE
     Indication: SUBSTANCE USE
     Dosage: 2.5 G / DAY

REACTIONS (5)
  - Lower urinary tract symptoms [Unknown]
  - Ureteritis [Unknown]
  - Ureteral polyp [Unknown]
  - Hydronephrosis [Recovering/Resolving]
  - Drug abuse [Unknown]
